FAERS Safety Report 8281633-1 (Version None)
Quarter: 2012Q2

REPORT INFORMATION
  Report Type: 
  Country: None (occurrence: None)
  Receive Date: 20120410
  Receipt Date: 20120328
  Transmission Date: 20120825
  Serious: Yes (Hospitalization, Other)
  Sender: FDA-Public Use
  Company Number: DSJ-2012-06170

PATIENT
  Age: 75 Year
  Sex: Female

DRUGS (7)
  1. CLONAZEPAM [Concomitant]
  2. QUETIAPIN (QUETIAPINE) (QUETIAPINE) [Concomitant]
  3. BENICAR [Suspect]
     Indication: HYPERTENSION
     Dosage: UNKNOWN (1 IN 1 D), PER ORAL
     Route: 048
     Dates: start: 20100101, end: 20110101
  4. SERTRALINE HYDROCHLORIDE [Concomitant]
  5. VITAMIN D (ERGOCALCIFEROL) (ERGOCALCIFEROL) [Concomitant]
  6. ALENDRONATE (ALENDRONATE SODIUM) (ALENDRONATE SODIUM) [Concomitant]
  7. LEVOTHYROXINE SODIUM [Concomitant]

REACTIONS (3)
  - BLOOD PRESSURE SYSTOLIC INCREASED [None]
  - DRUG INEFFECTIVE [None]
  - BREAST CANCER FEMALE [None]
